FAERS Safety Report 5594664-7 (Version None)
Quarter: 2007Q4

REPORT INFORMATION
  Report Type: 
  Country: None (occurrence: None)
  Receive Date: 20071217
  Receipt Date: 20070801
  Transmission Date: 20080405
  Serious: Yes (Other)
  Sender: FDA-Public Use
  Company Number: 1-15170844

PATIENT
  Age: 51 Year
  Sex: Female

DRUGS (15)
  1. SOTRADECOL [Suspect]
     Indication: SPIDER VEIN
     Dosage: INTRAVENOUS
     Route: 042
     Dates: start: 20070503, end: 20070503
  2. CALCIUM [Concomitant]
  3. ASCORBIC ACID [Concomitant]
  4. BETA-CAROTENE [Concomitant]
  5. MULTI-VITAMIN [Concomitant]
  6. GLUCOSAMINE/CHONDROITIN [Concomitant]
  7. VITAMIN E [Concomitant]
  8. ACIDOPHILUS [Concomitant]
  9. HORSE CHESTNUT (FOR BACK) [Concomitant]
  10. 1/2 SOMA [Concomitant]
  11. ALEVE (SINCE INJECTIONS) [Concomitant]
  12. HORMONE REPLACTEMENT [Concomitant]
  13. LYRICA [Concomitant]
  14. WOBENZYME [Concomitant]
  15. MAGNESIUM [Concomitant]

REACTIONS (4)
  - HYPERSENSITIVITY [None]
  - INJECTION SITE EXTRAVASATION [None]
  - SERRATIA INFECTION [None]
  - SKIN ULCER [None]
